FAERS Safety Report 17877697 (Version 1)
Quarter: 2020Q2

REPORT INFORMATION
  Report Type: Spontaneous
  Country: US (occurrence: US)
  Receive Date: 20200609
  Receipt Date: 20200609
  Transmission Date: 20200714
  Serious: Yes (Hospitalization)
  Sender: FDA-Public Use
  Company Number: US-FRESENIUS KABI-FK202005748

PATIENT
  Age: 53 Year
  Sex: Female

DRUGS (2)
  1. DEXAMETHASONE INJECTION (MANUFACTURER UNKNOWN) [Suspect]
     Active Substance: DEXAMETHASONE
     Indication: BACK PAIN
     Dosage: 10MG/ML
     Route: 008
  2. IOPAMIDOL [Suspect]
     Active Substance: IOPAMIDOL
     Indication: EPIDURAL CATHETER PLACEMENT
     Dosage: UNKNOWN
     Route: 008

REACTIONS (1)
  - Conversion disorder [Recovered/Resolved]
